FAERS Safety Report 20768898 (Version 1)
Quarter: 2022Q2

REPORT INFORMATION
  Report Type: Spontaneous
  Country: US (occurrence: None)
  Receive Date: 20220428
  Receipt Date: 20220428
  Transmission Date: 20220721
  Serious: No
  Sender: FDA-Public Use
  Company Number: None

PATIENT
  Age: 56 Year
  Sex: Female

DRUGS (1)
  1. ENBREL [Suspect]
     Active Substance: ETANERCEPT
     Dosage: OTHER FREQUENCY : EVERY 7 DAYS;?
     Route: 058

REACTIONS (6)
  - Injection site haemorrhage [None]
  - Arthralgia [None]
  - Nausea [None]
  - Vomiting [None]
  - Fatigue [None]
  - Mouth ulceration [None]
